FAERS Safety Report 7035208-2 (Version None)
Quarter: 2010Q4

REPORT INFORMATION
  Report Type: 
  Country: None (occurrence: None)
  Receive Date: 20101007
  Receipt Date: 20101007
  Transmission Date: 20110411
  Serious: Yes (Congenital Anomaly)
  Sender: FDA-Public Use
  Company Number: None

PATIENT
  Sex: Female
  Weight: 11.7935 kg

DRUGS (2)
  1. TERBUTALINE [Suspect]
     Indication: PREMATURE LABOUR
     Dosage: 2.5 MG 1 TO 2 TABLETS Q4H
     Route: 048
     Dates: start: 20070803, end: 20070807
  2. TERBUTALINE [Suspect]
     Indication: UTERINE DISORDER
     Dosage: 2.5 MG 1 TO 2 TABLETS Q4H
     Route: 048
     Dates: start: 20070803, end: 20070807

REACTIONS (2)
  - MATERNAL DRUGS AFFECTING FOETUS [None]
  - SPEECH DISORDER DEVELOPMENTAL [None]
